FAERS Safety Report 12709962 (Version 1)
Quarter: 2016Q3

REPORT INFORMATION
  Report Type: Spontaneous
  Country: TW (occurrence: TW)
  Receive Date: 20160902
  Receipt Date: 20160902
  Transmission Date: 20161109
  Serious: Yes (Hospitalization)
  Sender: FDA-Public Use
  Company Number: TW-HQ SPECIALTY-TW-2016INT000863

PATIENT
  Age: 50 Year
  Sex: Female

DRUGS (6)
  1. CISPLATIN. [Suspect]
     Active Substance: CISPLATIN
     Indication: METASTASES TO LUNG
     Dosage: 80 MG/M2, SINGLE 6-HOUR INFUSION ON DAY 1
     Route: 042
  2. CISPLATIN. [Suspect]
     Active Substance: CISPLATIN
     Indication: NASOPHARYNGEAL CANCER STAGE IV
     Dosage: 80 MG/M2, SINGLE 6-HOUR INFUSION ON DAY 1, Q 4 WKS
     Route: 042
  3. FLUOROURACIL. [Suspect]
     Active Substance: FLUOROURACIL
     Indication: METASTASES TO LUNG
     Dosage: 800 MG/M2, ON CONTINUOUS PUMP FROM DAY 1 TO DAY 4
  4. DOCETAXEL. [Suspect]
     Active Substance: DOCETAXEL
     Indication: NASOPHARYNGEAL CANCER STAGE IV
     Dosage: 60 MG/M2, SINGLE 1-HOUR INFUSION ON DAY 1
     Route: 042
  5. DOCETAXEL. [Suspect]
     Active Substance: DOCETAXEL
     Indication: METASTASES TO LUNG
  6. FLUOROURACIL. [Suspect]
     Active Substance: FLUOROURACIL
     Indication: NASOPHARYNGEAL CANCER STAGE IV
     Dosage: 800 MG/M2, ON CONTINUOUS PUMP FROM DAY 1 TO DAY 4, Q 4 WKS
     Route: 042

REACTIONS (16)
  - Somnolence [Recovering/Resolving]
  - Quadriplegia [Recovering/Resolving]
  - Peroneal nerve palsy [Recovering/Resolving]
  - Hyponatraemia [Recovered/Resolved]
  - Muscle spasms [Recovering/Resolving]
  - Inappropriate antidiuretic hormone secretion [Unknown]
  - Muscular weakness [Recovering/Resolving]
  - Locked-in syndrome [Recovering/Resolving]
  - Dysphagia [Recovering/Resolving]
  - Mutism [Recovering/Resolving]
  - Joint stiffness [Recovering/Resolving]
  - Slow response to stimuli [Recovering/Resolving]
  - Stridor [Recovering/Resolving]
  - Osmotic demyelination syndrome [Recovering/Resolving]
  - Dysarthria [Recovering/Resolving]
  - Staring [Recovering/Resolving]
